FAERS Safety Report 10489206 (Version 1)
Quarter: 2014Q4

REPORT INFORMATION
  Report Type: Spontaneous
  Country: US (occurrence: US)
  Receive Date: 20141002
  Receipt Date: 20141002
  Transmission Date: 20150528
  Serious: No
  Sender: FDA-Public Use
  Company Number: US-PFIZER INC-2014265459

PATIENT
  Age: 47 Year
  Sex: Female
  Weight: 57.6 kg

DRUGS (3)
  1. RELPAX [Suspect]
     Active Substance: ELETRIPTAN HYDROBROMIDE
     Indication: MIGRAINE
     Dosage: 40 MG, AS NEEDED (NOT MORE THAN ONE TABLET IN 24HOURS AND NOT MORE THAN 6 TABLETS IN A MONTH)
  2. RELPAX [Suspect]
     Active Substance: ELETRIPTAN HYDROBROMIDE
     Indication: HEADACHE
  3. LEVOTHYROXINE [Concomitant]
     Active Substance: LEVOTHYROXINE
     Indication: THYROID DISORDER
     Dosage: 1 DF, DAILY (IN THE MORNING)

REACTIONS (10)
  - Erythema [Not Recovered/Not Resolved]
  - Feeling hot [Unknown]
  - Hypersensitivity [Unknown]
  - Pruritus [Not Recovered/Not Resolved]
  - Rash [Recovered/Resolved]
  - Hypoaesthesia [Unknown]
  - Rash [Not Recovered/Not Resolved]
  - Cheilitis [Not Recovered/Not Resolved]
  - Eyelid oedema [Recovering/Resolving]
  - Erythema [Recovered/Resolved]

NARRATIVE: CASE EVENT DATE: 20140924
